FAERS Safety Report 4880028-8 (Version None)
Quarter: 2006Q1

REPORT INFORMATION
  Report Type: 
  Country: None (occurrence: None)
  Receive Date: 20060111
  Receipt Date: 20051221
  Transmission Date: 20060701
  Serious: Yes (Hospitalization, Other)
  Sender: FDA-Public Use
  Company Number: USA0509108369

PATIENT
  Age: 76 Year
  Sex: Female
  Weight: 78.2 kg

DRUGS (4)
  1. FORTEO (TERIPARATIDE) PEN, DISPOSABLE [Suspect]
     Indication: OSTEOPOROSIS
     Dosage: EACH EVENING,
     Dates: start: 20050801
  2. XANAX [Concomitant]
  3. FORTEO PEN, 250MCG/ML (3ML) (FORTEO PEN 250MCG/ML (3ML)) PEN, DISPOSAB [Concomitant]
  4. ACIPHEX [Concomitant]

REACTIONS (5)
  - DIZZINESS [None]
  - MITRAL VALVE PROLAPSE [None]
  - PALPITATIONS [None]
  - SUPRAVENTRICULAR EXTRASYSTOLES [None]
  - SUPRAVENTRICULAR TACHYCARDIA [None]
